FAERS Safety Report 9125089 (Version 2)
Quarter: 2013Q1

REPORT INFORMATION
  Report Type: Spontaneous
  Country: US (occurrence: US)
  Receive Date: 20130227
  Receipt Date: 20130318
  Transmission Date: 20140127
  Serious: Yes (Hospitalization)
  Sender: FDA-Public Use
  Company Number: PHEH2013US004705

PATIENT
  Sex: Female

DRUGS (1)
  1. SANDIMMUNE NEORAL [Suspect]
     Indication: RENAL TRANSPLANT
     Dosage: 300 MG, DAILY
     Route: 048

REACTIONS (3)
  - Diabetic complication [Unknown]
  - Bronchitis [Unknown]
  - Pneumonia [Unknown]
